FAERS Safety Report 9999402 (Version 1)
Quarter: 2014Q1

REPORT INFORMATION
  Report Type: Spontaneous
  Country: US (occurrence: None)
  Receive Date: 20140311
  Receipt Date: 20140311
  Transmission Date: 20141002
  Serious: Yes (Hospitalization)
  Sender: FDA-Public Use
  Company Number: None

PATIENT
  Age: 39 Year
  Sex: Male
  Weight: 81.7 kg

DRUGS (1)
  1. IBUPROFEN [Suspect]
     Route: 048
     Dates: start: 20130425, end: 20130531

REACTIONS (3)
  - Anaemia [None]
  - Iron deficiency anaemia [None]
  - Condition aggravated [None]
